FAERS Safety Report 9565062 (Version 3)
Quarter: 2013Q4

REPORT INFORMATION
  Report Type: Spontaneous
  Country: JP (occurrence: JP)
  Receive Date: 20130930
  Receipt Date: 20131018
  Transmission Date: 20140711
  Serious: Yes (Death)
  Sender: FDA-Public Use
  Company Number: JP-UCBSA-099007

PATIENT
  Age: 80 Year
  Sex: Female

DRUGS (11)
  1. CIMZIA [Suspect]
     Indication: RHEUMATOID ARTHRITIS
     Dosage: DOSE: 200 MG, SYRINGE
     Route: 058
     Dates: start: 20130816
  2. XYZAL [Concomitant]
     Route: 048
     Dates: start: 201202
  3. METHYCOBAL [Concomitant]
     Route: 048
     Dates: start: 200701
  4. PREDONINE [Concomitant]
     Route: 048
     Dates: start: 200701
  5. METOLATE [Concomitant]
     Route: 048
     Dates: start: 200701
  6. FOLIAMIN [Concomitant]
     Route: 048
     Dates: start: 200701
  7. PROTECADIN [Concomitant]
     Route: 048
     Dates: start: 201202
  8. LUPRAC [Concomitant]
     Route: 048
     Dates: start: 201202
  9. TAKEPRON [Concomitant]
     Route: 048
     Dates: start: 201202
  10. BAYASPIRIN [Concomitant]
     Route: 048
     Dates: start: 2012
  11. MOBIC [Concomitant]
     Route: 048
     Dates: start: 200701

REACTIONS (1)
  - Death [Fatal]
